FAERS Safety Report 13157274 (Version 1)
Quarter: 2017Q1

REPORT INFORMATION
  Report Type: Spontaneous
  Country: GB (occurrence: GB)
  Receive Date: 20170127
  Receipt Date: 20170127
  Transmission Date: 20170428
  Serious: Yes (Hospitalization)
  Sender: FDA-Public Use
  Company Number: GB-ACCORD-047568

PATIENT
  Age: 46 Year
  Sex: Male

DRUGS (15)
  1. CODEINE [Concomitant]
     Active Substance: CODEINE
     Dosage: 30-60 MG FOUR TIMES DAILY
  2. METFORMIN [Concomitant]
     Active Substance: METFORMIN HYDROCHLORIDE
  3. SALBUTAMOL/SALBUTAMOL SULFATE [Concomitant]
  4. CAPECITABINE. [Suspect]
     Active Substance: CAPECITABINE
     Indication: COLON CANCER STAGE III
     Dosage: TWICE DAILY ORAL
     Route: 048
     Dates: start: 20160531, end: 201610
  5. OXALIPLATIN. [Suspect]
     Active Substance: OXALIPLATIN
     Indication: COLON CANCER STAGE III
     Dosage: 8 CYCLES EVERY 3 WEEKS; INTRAVENOUS FOR 2 HOURS
     Route: 042
     Dates: start: 20160531, end: 201610
  6. ZAPONEX [Suspect]
     Active Substance: CLOZAPINE
     Indication: SCHIZOPHRENIA
     Dosage: 100 MG AM AND 125 MG PM AT NIGHT
     Route: 048
     Dates: start: 20160425
  7. ATORVASTATIN/ATORVASTATIN CALCIUM [Concomitant]
  8. CLOPIDOGREL [Concomitant]
     Active Substance: CLOPIDOGREL BISULFATE
  9. LANSOPRAZOLE. [Concomitant]
     Active Substance: LANSOPRAZOLE
  10. SITAGLIPTIN/SITAGLIPTIN PHOSPHATE [Concomitant]
  11. FOSTAIR [Concomitant]
     Active Substance: BECLOMETHASONE\FORMOTEROL
     Route: 055
  12. MIRTAZAPINE. [Concomitant]
     Active Substance: MIRTAZAPINE
  13. RAMIPRIL. [Concomitant]
     Active Substance: RAMIPRIL
  14. FORTISIP [Concomitant]
     Active Substance: CARBOHYDRATES\FATTY ACIDS\MINERALS\PROTEIN\VITAMINS
  15. PARACETAMOL [Concomitant]
     Active Substance: ACETAMINOPHEN

REACTIONS (4)
  - Colon cancer stage III [Unknown]
  - Haemoglobin decreased [Recovering/Resolving]
  - Contraindicated product administered [Unknown]
  - Neutrophil count increased [Recovered/Resolved]

NARRATIVE: CASE EVENT DATE: 2016
